FAERS Safety Report 8905695 (Version 2)
Quarter: 2014Q3

REPORT INFORMATION
  Report Type: Spontaneous
  Country: US (occurrence: US)
  Receive Date: 20121113
  Receipt Date: 20140722
  Transmission Date: 20150326
  Serious: Yes (Hospitalization, Disabling, Other)
  Sender: FDA-Public Use
  Company Number: US-009507513-2011SP027264

PATIENT
  Sex: Female
  Weight: 64.41 kg

DRUGS (2)
  1. NUVARING [Suspect]
     Active Substance: ETHINYL ESTRADIOL\ETONOGESTREL
     Indication: HORMONE REPLACEMENT THERAPY
     Route: 067
     Dates: start: 201007, end: 20110207
  2. NUVARING [Suspect]
     Active Substance: ETHINYL ESTRADIOL\ETONOGESTREL
     Indication: MENORRHAGIA

REACTIONS (12)
  - Pulmonary infarction [Unknown]
  - Migraine [Unknown]
  - Hypertension [Unknown]
  - Pulmonary embolism [Unknown]
  - Asthma [Unknown]
  - Aortic dissection [Unknown]
  - Influenza [Unknown]
  - Gastroenteritis [Recovered/Resolved]
  - Deep vein thrombosis [Unknown]
  - Lobar pneumonia [Unknown]
  - Off label use [Unknown]
  - Depression [Not Recovered/Not Resolved]

NARRATIVE: CASE EVENT DATE: 201102
